FAERS Safety Report 4801358-1 (Version None)
Quarter: 2005Q4

REPORT INFORMATION
  Report Type: 
  Country: None (occurrence: None)
  Receive Date: 20051012
  Receipt Date: 20051003
  Transmission Date: 20060501
  Serious: Yes (Death, Hospitalization)
  Sender: FDA-Public Use
  Company Number: AZAFR200500113

PATIENT
  Age: 72 Year
  Sex: Male
  Weight: 88 kg

DRUGS (3)
  1. AZACITIDINE (AZACITIDINE) (INJECTION) [Suspect]
     Indication: MYELODYSPLASTIC SYNDROME
     Dosage: 75 MG/M2 (150 MG, X 7
     Dates: start: 20050304, end: 20050310
  2. OFLOCET (OFLOXACIN) [Concomitant]
  3. AMPICILLIN [Concomitant]

REACTIONS (7)
  - ACUTE PULMONARY OEDEMA [None]
  - CARDIAC FAILURE [None]
  - ISCHAEMIC STROKE [None]
  - NEUTROPENIA [None]
  - PLATELET COUNT DECREASED [None]
  - PLATELET COUNT INCREASED [None]
  - PNEUMONIA [None]
